FAERS Safety Report 7565051-7 (Version None)
Quarter: 2011Q2

REPORT INFORMATION
  Report Type: 
  Country: None (occurrence: None)
  Receive Date: 20110622
  Receipt Date: 20110418
  Transmission Date: 20111010
  Serious: Yes (Death)
  Sender: FDA-Public Use
  Company Number: US-MYLANLABS-2011S1008104

PATIENT
  Age: 78 Year
  Sex: Female

DRUGS (8)
  1. SENNA PLUS /00936101/ [Concomitant]
  2. CLOZAPINE [Suspect]
  3. MIRALAX [Concomitant]
  4. CLOZAPINE [Suspect]
  5. MIRTAZAPINE [Concomitant]
  6. LASIX [Concomitant]
  7. LEVOTHYROXINE SODIUM [Concomitant]
  8. LORAZEPAM [Concomitant]

REACTIONS (1)
  - DEATH [None]
